FAERS Safety Report 21797759 (Version 1)
Quarter: 2022Q4

REPORT INFORMATION
  Report Type: Spontaneous
  Country: US (occurrence: US)
  Receive Date: 20221230
  Receipt Date: 20221230
  Transmission Date: 20230112
  Serious: Yes (Other)
  Sender: FDA-Public Use
  Company Number: US-STERISCIENCE B.V.-2022-ST-000386

PATIENT
  Age: 73 Year
  Sex: Male

DRUGS (9)
  1. BUPIVACAINE [Suspect]
     Active Substance: BUPIVACAINE
     Indication: Ventricular tachycardia
     Dosage: 30 MILLILITER, 0.5% BUPIVACAINE WITH EPINEPHRINE
     Route: 065
  2. BUPIVACAINE [Suspect]
     Active Substance: BUPIVACAINE
     Dosage: 0.1% BUPIVACAINE AT A RATE OF 2 ML/HR INFUSION
     Route: 065
  3. BUPIVACAINE [Suspect]
     Active Substance: BUPIVACAINE
     Dosage: 15 MILLILITER BOLUS OF 0.25%
     Route: 065
  4. BUPIVACAINE [Suspect]
     Active Substance: BUPIVACAINE
     Dosage: INFUSION WAS INCREASED TO 0.125% BUPIVACAINE AT A RATE OF 6 ML/HR
     Route: 065
  5. METOPROLOL [Suspect]
     Active Substance: METOPROLOL
     Indication: Ventricular tachycardia
     Dosage: UNK
     Route: 065
  6. AMIODARONE [Suspect]
     Active Substance: AMIODARONE
     Indication: Ventricular tachycardia
     Dosage: UNK
     Route: 065
  7. EPINEPHRINE [Suspect]
     Active Substance: EPINEPHRINE
     Indication: Ventricular tachycardia
     Dosage: UNK
     Route: 065
  8. WARFARIN [Concomitant]
     Active Substance: WARFARIN
     Indication: Product used for unknown indication
     Dosage: UNK
     Route: 065
  9. HEPARIN [Concomitant]
     Active Substance: HEPARIN SODIUM
     Indication: Product used for unknown indication
     Dosage: UNK
     Route: 065

REACTIONS (2)
  - Horner^s syndrome [Unknown]
  - Drug ineffective for unapproved indication [Unknown]
